FAERS Safety Report 8818587 (Version 1)
Quarter: 2012Q4

REPORT INFORMATION
  Report Type: 
  Country: US (occurrence: US)
  Receive Date: 20121001
  Receipt Date: 20121001
  Transmission Date: 20130627
  Serious: No
  Sender: FDA-Public Use
  Company Number: US-ASTRAZENECA-2012SE72875

PATIENT
  Age: 27 Year
  Sex: Female
  Weight: 49.9 kg

DRUGS (2)
  1. NEXIUM [Suspect]
     Indication: GASTROOESOPHAGEAL REFLUX DISEASE
     Route: 048
     Dates: start: 201103, end: 201106
  2. NEXIUM [Suspect]
     Indication: GASTROOESOPHAGEAL REFLUX DISEASE
     Route: 048
     Dates: start: 20120914

REACTIONS (4)
  - Gastrooesophageal reflux disease [Unknown]
  - Ear pain [Unknown]
  - Dry mouth [Unknown]
  - Abdominal pain upper [Unknown]
